FAERS Safety Report 19462269 (Version 1)
Quarter: 2021Q2

REPORT INFORMATION
  Report Type: Spontaneous
  Country: CA (occurrence: CA)
  Receive Date: 20210625
  Receipt Date: 20210625
  Transmission Date: 20210717
  Serious: Yes (Other)
  Sender: FDA-Public Use
  Company Number: CA-FRESENIUS KABI-FK202106463

PATIENT
  Age: 55 Year
  Sex: Female

DRUGS (1)
  1. LEVOTHYROXINE SODIUM FOR INJECTION (MANUFACTURER UNKNOWN) [Suspect]
     Active Substance: LEVOTHYROXINE SODIUM
     Indication: HYPOTHYROIDISM
     Route: 065

REACTIONS (5)
  - Weight increased [Recovered/Resolved]
  - Fatigue [Recovered/Resolved]
  - Arthralgia [Recovered/Resolved]
  - Gait inability [Recovered/Resolved]
  - Myalgia [Recovered/Resolved]
